FAERS Safety Report 4365787-5 (Version None)
Quarter: 2004Q2

REPORT INFORMATION
  Report Type: 
  Country: None (occurrence: None)
  Receive Date: 20040520
  Receipt Date: 20040423
  Transmission Date: 20050107
  Serious: Yes (Hospitalization)
  Sender: FDA-Public Use
  Company Number: 2004213286US

PATIENT
  Age: 72 Year
  Sex: Female

DRUGS (5)
  1. CYCLOPHOSPHAMIDE [Suspect]
     Indication: PERIPHERAL T-CELL LYMPHOMA UNSPECIFIED
     Dosage: 8 CYCLES
  2. DOXORUBICIN PFS (DOXORUBICIN HYDROCHLORIDE) SOLUTION, STERILE [Suspect]
     Indication: PERIPHERAL T-CELL LYMPHOMA UNSPECIFIED
     Dosage: 8 CYCLES
  3. VINCRISTINE [Suspect]
     Indication: PERIPHERAL T-CELL LYMPHOMA UNSPECIFIED
     Dosage: 8 CYCLES
  4. PREDNISONE [Concomitant]
  5. GRANULOCYTE COLONY STIMULATING FACTOR [Concomitant]

REACTIONS (5)
  - ACUTE MONOCYTIC LEUKAEMIA [None]
  - ANAEMIA [None]
  - DISSEMINATED INTRAVASCULAR COAGULATION [None]
  - LEUKOCYTOSIS [None]
  - THROMBOCYTOPENIA [None]
